FAERS Safety Report 6139102-0 (Version None)
Quarter: 2009Q1

REPORT INFORMATION
  Report Type: 
  Country: None (occurrence: None)
  Receive Date: 20090324
  Receipt Date: 20090316
  Transmission Date: 20090719
  Serious: Yes (Other)
  Sender: FDA-Public Use
  Company Number: POMP-1000224

PATIENT
  Age: 49 Year
  Sex: Male

DRUGS (11)
  1. MYOZYME [Suspect]
     Indication: GLYCOGEN STORAGE DISEASE TYPE II
     Dosage: 20 MG/KG, Q2W, INTRAVENOUS
     Route: 042
     Dates: start: 20070525
  2. FLAGYL [Concomitant]
  3. SOSIN [Concomitant]
  4. VANCOMYCIN [Concomitant]
  5. LEXAPRO [Concomitant]
  6. PULMOZYME [Concomitant]
  7. ATIVAN [Concomitant]
  8. LYRICA [Concomitant]
  9. CARDIZEM [Concomitant]
  10. MYOZYME [Suspect]
  11. MYOZYME [Suspect]
     Dosage: 20 MG/KG,Q2W, INTRAVENOUS
     Dates: start: 20070525

REACTIONS (1)
  - SKIN DISCOLOURATION [None]
